FAERS Safety Report 11180271 (Version 1)
Quarter: 2015Q2

REPORT INFORMATION
  Report Type: Spontaneous
  Country: US (occurrence: US)
  Receive Date: 20150611
  Receipt Date: 20150611
  Transmission Date: 20150821
  Serious: Yes (Hospitalization, Other)
  Sender: FDA-Public Use
  Company Number: US-MALLINCKRODT-T201502905

PATIENT
  Age: 10 Month
  Sex: Female

DRUGS (1)
  1. ROXICODONE [Suspect]
     Active Substance: OXYCODONE HYDROCHLORIDE
     Indication: PRODUCT USED FOR UNKNOWN INDICATION
     Route: 065

REACTIONS (10)
  - Eye movement disorder [Unknown]
  - Hydrocephalus [Unknown]
  - Hypertonia [Unknown]
  - Retinal haemorrhage [Unknown]
  - Leukocytosis [Unknown]
  - Accidental overdose [Recovered/Resolved]
  - Transaminases increased [Unknown]
  - Encephalitis [Recovered/Resolved]
  - Drug screen positive [Unknown]
  - Child abuse [Unknown]
